FAERS Safety Report 23816037 (Version 1)
Quarter: 2024Q2

REPORT INFORMATION
  Report Type: Spontaneous
  Country: US (occurrence: None)
  Receive Date: 20240430
  Receipt Date: 20240430
  Transmission Date: 20240716
  Serious: Yes (Hospitalization)
  Sender: FDA-Public Use
  Company Number: None

PATIENT
  Age: 59 Year
  Sex: Female
  Weight: 77.4 kg

DRUGS (1)
  1. XELODA [Suspect]
     Active Substance: CAPECITABINE
     Indication: Gastrointestinal haemorrhage
     Dates: end: 20240418

REACTIONS (11)
  - Aneurysm [None]
  - Deep vein thrombosis [None]
  - Diabetes mellitus [None]
  - Abdominal pain [None]
  - Diarrhoea [None]
  - Faeces discoloured [None]
  - Abdominal pain upper [None]
  - Fatigue [None]
  - Hypophagia [None]
  - Nausea [None]
  - Vomiting [None]

NARRATIVE: CASE EVENT DATE: 20240421
